FAERS Safety Report 10757318 (Version 1)
Quarter: 2015Q1

REPORT INFORMATION
  Report Type: Spontaneous
  Country: US (occurrence: US)
  Receive Date: 20150203
  Receipt Date: 20150203
  Transmission Date: 20150721
  Serious: No
  Sender: FDA-Public Use
  Company Number: US-TEVA-491257USA

PATIENT

DRUGS (1)
  1. FLUDROCORTISONE [Suspect]
     Active Substance: FLUDROCORTISONE

REACTIONS (1)
  - Malaise [Unknown]
